FAERS Safety Report 21919422 (Version 1)
Quarter: 2023Q1

REPORT INFORMATION
  Report Type: Spontaneous
  Country: NL (occurrence: NL)
  Receive Date: 20230127
  Receipt Date: 20230127
  Transmission Date: 20230417
  Serious: Yes (Other)
  Sender: FDA-Public Use
  Company Number: None

PATIENT
  Sex: Male
  Weight: 57.3 kg

DRUGS (2)
  1. FLUOXETINE [Suspect]
     Active Substance: FLUOXETINE HYDROCHLORIDE
     Indication: Depression
     Dosage: 1 X PER DAY 1  ??STRENGTH: 20 MG
     Dates: start: 20221107, end: 20221124
  2. PROMETHAZINE [Concomitant]
     Active Substance: PROMETHAZINE HYDROCHLORIDE
     Indication: Sleep disorder
     Dosage: STRENGTH: 25 MG 1 X PER DAY 1
     Dates: start: 20221020, end: 20221118

REACTIONS (1)
  - Tic [Not Recovered/Not Resolved]
